FAERS Safety Report 5247920-6 (Version None)
Quarter: 2007Q1

REPORT INFORMATION
  Report Type: 
  Country: None (occurrence: None)
  Receive Date: 20070220
  Receipt Date: 20070206
  Transmission Date: 20070707
  Serious: Yes (Hospitalization)
  Sender: FDA-Public Use
  Company Number: CERZ-11479

PATIENT
  Sex: Female
  Weight: 56.6 kg

DRUGS (1)
  1. CEREZYME [Suspect]
     Indication: GAUCHER'S DISEASE
     Dosage: 106 U/KG Q2WKS IV
     Route: 042
     Dates: start: 19970425

REACTIONS (1)
  - BONE DISORDER [None]
